FAERS Safety Report 13062034 (Version 1)
Quarter: 2016Q4

REPORT INFORMATION
  Report Type: Spontaneous
  Country: US (occurrence: US)
  Receive Date: 20161226
  Receipt Date: 20161226
  Transmission Date: 20170207
  Serious: Yes (Hospitalization, Other)
  Sender: FDA-Public Use
  Company Number: US-PFIZER INC-2015473950

PATIENT
  Age: 71 Year
  Sex: Male
  Weight: 180.8 kg

DRUGS (20)
  1. REVATIO [Suspect]
     Active Substance: SILDENAFIL CITRATE
     Indication: HYPERTENSION
     Dosage: 20 MG, 3X/DAY
     Route: 048
  2. CELEXA [Concomitant]
     Active Substance: CITALOPRAM HYDROBROMIDE
     Dosage: 10 MG, DAILY [EVERY DAY]
     Route: 048
  3. POTASSIUM CHLORIDE. [Concomitant]
     Active Substance: POTASSIUM CHLORIDE
     Dosage: 20 MEQ, 1X/DAY
     Route: 048
     Dates: start: 20160512
  4. TRAMADOL. [Concomitant]
     Active Substance: TRAMADOL
     Dosage: 50 MG, AS NEEDED [EVERY DAY]
     Route: 048
     Dates: start: 20120229
  5. LISINOPRIL + HIDROCLOROTIAZIDE [Concomitant]
     Dosage: DAILY [LISINOPRIL- 20 MG/ HYDROCHLOROTHIAZIDE-12.5 MG]
     Route: 048
     Dates: start: 20140923
  6. PLAVIX [Concomitant]
     Active Substance: CLOPIDOGREL BISULFATE
     Dosage: 75 MG, DAILY
     Route: 048
     Dates: start: 20120229
  7. TRICOR [Concomitant]
     Active Substance: FENOFIBRATE
     Dosage: 145 MG, DAILY
     Route: 048
     Dates: start: 20120229
  8. REVATIO [Suspect]
     Active Substance: SILDENAFIL CITRATE
     Indication: PULMONARY HYPERTENSION
  9. KLOR-CON M20 [Concomitant]
     Active Substance: POTASSIUM CHLORIDE
     Dosage: 20 MEQ, 2X/DAY [2 TIMES EVERY DAY]
     Route: 048
     Dates: start: 20141209
  10. MEDROL [Concomitant]
     Active Substance: METHYLPREDNISOLONE
     Dosage: 4 MG, TABLETS IN A DOSE PACK
     Route: 048
     Dates: start: 20160922
  11. ROZEREM [Concomitant]
     Active Substance: RAMELTEON
     Dosage: 8 MG, 1X/DAY [EVERY DAY AT BEDTIME]
     Route: 048
     Dates: start: 20160922
  12. REVATIO [Suspect]
     Active Substance: SILDENAFIL CITRATE
     Indication: CHRONIC OBSTRUCTIVE PULMONARY DISEASE
     Dosage: 20 MG, 3X/DAY
     Route: 048
     Dates: start: 20161208
  13. ADVAIR DISKUS [Concomitant]
     Active Substance: FLUTICASONE PROPIONATE\SALMETEROL XINAFOATE
     Dosage: 1 DF, 2X/DAY [FLUTICASONE PROPIONATE- 500MCG/ SALMETEROL XINAFOATE- 50MCG]
     Route: 055
     Dates: start: 20120229
  14. ATENOLOL. [Concomitant]
     Active Substance: ATENOLOL
     Dosage: 50 MG, 2X/DAY
     Route: 048
  15. RANITIDINE. [Concomitant]
     Active Substance: RANITIDINE
     Dosage: 150 MG, DAILY
     Route: 048
  16. INCRUSE ELLIPTA [Concomitant]
     Active Substance: UMECLIDINIUM BROMIDE
     Dosage: UNK UNK, 1X/DAY [62.5 MCG/ACTUATION POWDER FOR INHALATION] [ONCE FOR 1 DAY]
     Route: 055
     Dates: start: 20161212
  17. ISOSORBIDE MONONITRATE. [Concomitant]
     Active Substance: ISOSORBIDE MONONITRATE
     Dosage: 60 MG, 1X/DAY [EVERY DAY IN THE MORNING]
     Route: 048
     Dates: start: 20161118
  18. LASIX [Concomitant]
     Active Substance: FUROSEMIDE
     Dosage: 40 MG, 2X/DAY
     Route: 048
     Dates: start: 20160919
  19. PROAIR HFA [Concomitant]
     Active Substance: ALBUTEROL SULFATE
     Dosage: AS NEEDED [INHALE 2 PUFF BY INHALATION ROUTE EVERY 4-6 HOURS] [90MCG/ACTUATION]
     Route: 055
     Dates: start: 20120229
  20. ZETONNA [Concomitant]
     Active Substance: CICLESONIDE
     Dosage: EVERY DAY IN EACH NOSTRIL [37 MCG/ACTUATION NASAL HFA INHALER]
     Route: 045
     Dates: start: 20140910

REACTIONS (6)
  - Product use issue [Not Recovered/Not Resolved]
  - Lung disorder [Not Recovered/Not Resolved]
  - General physical health deterioration [Not Recovered/Not Resolved]
  - Drug dose omission [Not Recovered/Not Resolved]
  - Cerebrovascular accident [Unknown]
  - Nephrolithiasis [Not Recovered/Not Resolved]

NARRATIVE: CASE EVENT DATE: 2016
